FAERS Safety Report 9915125 (Version 1)
Quarter: 2014Q1

REPORT INFORMATION
  Report Type: Spontaneous
  Country: US (occurrence: US)
  Receive Date: 20140220
  Receipt Date: 20140220
  Transmission Date: 20141002
  Serious: Yes (Death)
  Sender: FDA-Public Use
  Company Number: US-ELI_LILLY_AND_COMPANY-US201402005210

PATIENT
  Sex: Female

DRUGS (3)
  1. HUMALOG LISPRO [Suspect]
     Indication: DIABETES MELLITUS
     Route: 065
  2. SIMVASTATIN [Concomitant]
  3. GLIPIZIDE [Concomitant]

REACTIONS (2)
  - Cardiac disorder [Fatal]
  - Diabetic complication [Fatal]
